FAERS Safety Report 10484829 (Version 2)
Quarter: 2014Q4

REPORT INFORMATION
  Report Type: Spontaneous
  Country: SA (occurrence: SA)
  Receive Date: 20140930
  Receipt Date: 20141023
  Transmission Date: 20150528
  Serious: Yes (Hospitalization)
  Sender: FDA-Public Use
  Company Number: PHHY2014SA125672

PATIENT
  Sex: Female

DRUGS (2)
  1. AFINITOR [Suspect]
     Active Substance: EVEROLIMUS
     Indication: BREAST CANCER
     Dosage: 5 MG, UNK
     Route: 065
  2. AROMASIN [Concomitant]
     Active Substance: EXEMESTANE
     Indication: PRODUCT USED FOR UNKNOWN INDICATION
     Dosage: 25 MG, QD
     Route: 048

REACTIONS (11)
  - Cough [Not Recovered/Not Resolved]
  - Dyspnoea [Not Recovered/Not Resolved]
  - Hypotension [Unknown]
  - Diabetes mellitus [Not Recovered/Not Resolved]
  - Pyrexia [Unknown]
  - Chest discomfort [Unknown]
  - Pneumonitis [Not Recovered/Not Resolved]
  - Lung disorder [Unknown]
  - Cyanosis [Unknown]
  - Fatigue [Unknown]
  - Mental status changes [Unknown]

NARRATIVE: CASE EVENT DATE: 20140917
